FAERS Safety Report 18491723 (Version 1)
Quarter: 2020Q4

REPORT INFORMATION
  Report Type: Spontaneous
  Country: DE (occurrence: DE)
  Receive Date: 20201111
  Receipt Date: 20201111
  Transmission Date: 20210114
  Serious: Yes (Hospitalization)
  Sender: FDA-Public Use
  Company Number: DE-TEVA-2020-DE-1846751

PATIENT
  Age: 61 Year
  Sex: Male

DRUGS (5)
  1. NALOXON/OXYCODON [Concomitant]
     Active Substance: NALOXONE HYDROCHLORIDE\OXYCODONE HYDROCHLORIDE
     Dosage: 20 | 40 MG, REQUIREMENT UP TO 6 TIMES A DAY
  2. MOVICOL [Concomitant]
     Active Substance: POLYETHYLENE GLYCOL 3350\POTASSIUM CHLORIDE\SODIUM BICARBONATE\SODIUM CHLORIDE
     Dosage: REQUIREMENT
  3. METAMIZOL [Concomitant]
     Active Substance: METAMIZOLE SODIUM
     Dosage: REQUIREMENT 30 GTT UP TO 5 TIMES A DAY, DROPS
  4. GEMCITABINE. [Suspect]
     Active Substance: GEMCITABINE
     Route: 065
  5. LAXOBERAL [Concomitant]
     Active Substance: SODIUM PICOSULFATE
     Dosage: NEED, DROPS

REACTIONS (9)
  - Anaemia [Unknown]
  - Infection [Unknown]
  - Pain [Unknown]
  - Asthenia [Unknown]
  - General physical health deterioration [Unknown]
  - Pyrexia [Unknown]
  - Decreased appetite [Unknown]
  - Thrombocytopenia [Unknown]
  - Somnolence [Unknown]

NARRATIVE: CASE EVENT DATE: 2020
